FAERS Safety Report 9727060 (Version 3)
Quarter: 2014Q2

REPORT INFORMATION
  Report Type: Spontaneous
  Country: US (occurrence: US)
  Receive Date: 20131203
  Receipt Date: 20140625
  Transmission Date: 20141212
  Serious: Yes (Hospitalization, Other)
  Sender: FDA-Public Use
  Company Number: US-BAYER-2013-143788

PATIENT
  Age: 20 Year
  Sex: Female

DRUGS (1)
  1. YAZ [Suspect]
     Dosage: UNK
     Dates: start: 2004, end: 2005

REACTIONS (7)
  - Cholecystectomy [None]
  - Cholecystitis [None]
  - Injury [None]
  - General physical health deterioration [None]
  - Pain [None]
  - Dyspnoea [None]
  - Procedural complication [None]
